FAERS Safety Report 25463429 (Version 1)
Quarter: 2025Q2

REPORT INFORMATION
  Report Type: Spontaneous
  Country: CN (occurrence: CN)
  Receive Date: 20250620
  Receipt Date: 20250620
  Transmission Date: 20250717
  Serious: Yes (Other)
  Sender: ALEXION PHARMACEUTICALS
  Company Number: CN-ASTRAZENECA-202506CHN013095CN

PATIENT
  Age: 69 Year
  Weight: 84 kg

DRUGS (1)
  1. DAPAGLIFLOZIN [Suspect]
     Active Substance: DAPAGLIFLOZIN
     Indication: Diabetes mellitus
     Dosage: 10 MILLIGRAM, QD

REACTIONS (4)
  - Pruritus genital [Recovering/Resolving]
  - Pollakiuria [Recovering/Resolving]
  - Urethritis [Recovering/Resolving]
  - Micturition urgency [Recovering/Resolving]
